FAERS Safety Report 21740847 (Version 1)
Quarter: 2022Q4

REPORT INFORMATION
  Report Type: Spontaneous
  Country: CN (occurrence: CN)
  Receive Date: 20221216
  Receipt Date: 20221216
  Transmission Date: 20230113
  Serious: Yes (Other)
  Sender: FDA-Public Use
  Company Number: CN-ORGANON-O2212CHN000885

PATIENT
  Age: 57 Year
  Sex: Male

DRUGS (1)
  1. DIPROSPAN [Suspect]
     Active Substance: BETAMETHASONE DIPROPIONATE\BETAMETHASONE SODIUM PHOSPHATE
     Indication: Eczema
     Dosage: 7 MILLIGRAM, QD; STRENGTH: 5/2 MG/ML
     Route: 030
     Dates: start: 20221122, end: 20221122

REACTIONS (2)
  - Anaphylactic shock [Recovering/Resolving]
  - Sinus rhythm [Unknown]

NARRATIVE: CASE EVENT DATE: 20221122
